FAERS Safety Report 9790799 (Version 4)
Quarter: 2014Q2

REPORT INFORMATION
  Report Type: Spontaneous
  Country: FR (occurrence: FR)
  Receive Date: 20131231
  Receipt Date: 20140507
  Transmission Date: 20141212
  Serious: Yes (Hospitalization, Other)
  Sender: FDA-Public Use
  Company Number: PHHY2013FR150199

PATIENT
  Age: 79 Year
  Sex: Male

DRUGS (6)
  1. VOLTARENE LP [Suspect]
     Indication: PAIN IN EXTREMITY
     Dosage: 75 UKN, UNK
     Route: 048
     Dates: start: 20131122, end: 20131127
  2. VOLTARENE LP [Suspect]
     Indication: MUSCULOSKELETAL PAIN
  3. IXPRIM [Suspect]
     Indication: PAIN IN EXTREMITY
     Dosage: 4 DF, UNK
     Route: 048
     Dates: start: 20131122, end: 20131127
  4. IXPRIM [Suspect]
     Indication: MUSCULOSKELETAL PAIN
  5. OLMETEC [Concomitant]
     Indication: HYPERTENSION
     Dosage: 20 MG, QD
     Route: 048
     Dates: end: 20131127
  6. FENOFIBRATE [Concomitant]
     Dosage: 160 MG, QD
     Route: 048
     Dates: end: 20131127

REACTIONS (8)
  - Renal tubular disorder [Recovered/Resolved]
  - Vomiting [Unknown]
  - Renal tubular necrosis [Unknown]
  - Tubulointerstitial nephritis [Unknown]
  - Granuloma [Unknown]
  - Eosinophilia [Unknown]
  - Renal failure acute [Recovered/Resolved]
  - Rash [Recovered/Resolved]
